FAERS Safety Report 7356839-6 (Version None)
Quarter: 2011Q1

REPORT INFORMATION
  Report Type: 
  Country: None (occurrence: None)
  Receive Date: 20110317
  Receipt Date: 20110307
  Transmission Date: 20110831
  Serious: Yes (Hospitalization, Other)
  Sender: FDA-Public Use
  Company Number: US-BIOGENIDEC-2011BI009424

PATIENT
  Age: 35 Year
  Sex: Female

DRUGS (4)
  1. AVONEX [Suspect]
     Route: 030
     Dates: start: 20110108
  2. STEROIDS [Concomitant]
     Indication: MUSCLE SPASMS
  3. AVONEX [Suspect]
     Route: 030
     Dates: start: 20051112, end: 20061110
  4. AVONEX [Suspect]
     Indication: MULTIPLE SCLEROSIS
     Route: 030

REACTIONS (2)
  - CAESAREAN SECTION [None]
  - HYPEREMESIS GRAVIDARUM [None]
